FAERS Safety Report 20159821 (Version 2)
Quarter: 2022Q1

REPORT INFORMATION
  Report Type: Spontaneous
  Country: IL (occurrence: IL)
  Receive Date: 20211208
  Receipt Date: 20220117
  Transmission Date: 20220424
  Serious: No
  Sender: FDA-Public Use
  Company Number: IL-LUPIN PHARMACEUTICALS INC.-2021-23881

PATIENT
  Sex: Female

DRUGS (4)
  1. LEVOTHYROXINE [Suspect]
     Active Substance: LEVOTHYROXINE
     Indication: Hypothyroidism
     Dosage: 600 MICROGRAM WEEKLY
     Route: 065
  2. LORAZEPAM [Suspect]
     Active Substance: LORAZEPAM
     Indication: Anxiety
     Dosage: 1 MILLIGRAM, QD AS NEEDED
     Route: 065
  3. VORTIOXETINE [Suspect]
     Active Substance: VORTIOXETINE
     Indication: Anxiety
     Dosage: 10 MILLIGRAM, QD UNTIL 4 WEEKS OF GESTATION
     Route: 065
  4. VORTIOXETINE [Suspect]
     Active Substance: VORTIOXETINE
     Dosage: 5 MILLIGRAM, QD UNTIL 5 WEEKS OF GESTATION
     Route: 065

REACTIONS (1)
  - Exposure during pregnancy [Unknown]
